FAERS Safety Report 8402711-X (Version None)
Quarter: 2012Q2

REPORT INFORMATION
  Report Type: 
  Country: None (occurrence: None)
  Receive Date: 20120601
  Receipt Date: 20120522
  Transmission Date: 20120825
  Serious: Yes (Other)
  Sender: FDA-Public Use
  Company Number: BR-ROCHE-1071852

PATIENT
  Sex: Female
  Weight: 94 kg

DRUGS (4)
  1. DEFLAN [Concomitant]
  2. CALTREN [Concomitant]
  3. ATENOLOL [Concomitant]
  4. ACTEMRA [Suspect]
     Indication: PRODUCT USED FOR UNKNOWN INDICATION
     Route: 042
     Dates: start: 20101207, end: 20120201

REACTIONS (2)
  - VARICOSE ULCERATION [None]
  - WEIGHT INCREASED [None]
